FAERS Safety Report 19229974 (Version 1)
Quarter: 2021Q2

REPORT INFORMATION
  Report Type: Spontaneous
  Country: CN (occurrence: CN)
  Receive Date: 20210506
  Receipt Date: 20210506
  Transmission Date: 20210717
  Serious: Yes (Other)
  Sender: FDA-Public Use
  Company Number: CN-BAXTER-2021BAX009628

PATIENT
  Age: 13 Year
  Sex: Male
  Weight: 54 kg

DRUGS (13)
  1. 0.9% SODIUM CHLORIDE INJECTION [Suspect]
     Active Substance: SODIUM CHLORIDE
     Indication: MEDICATION DILUTION
     Dosage: 0.9% SODIUM CHLORIDE + VINCRISTINE 2 MG
     Route: 042
     Dates: start: 20210220, end: 20210220
  2. DEXAMETHASONE SODIUM PHOSPHATE. [Suspect]
     Active Substance: DEXAMETHASONE SODIUM PHOSPHATE
     Indication: ACUTE LYMPHOCYTIC LEUKAEMIA
     Dosage: CYTOSAR 0.035G + DEXAMETHASONE SODIUM PHOSPHATE 2.5 MG + 0.9% SODIUM CHLORIDE 3ML
     Route: 037
     Dates: start: 20210220, end: 20210220
  3. MERCAPTOPURINE. [Suspect]
     Active Substance: MERCAPTOPURINE
     Indication: ACUTE LYMPHOCYTIC LEUKAEMIA
     Dosage: DOSAGE FORM: TABLETS
     Route: 048
     Dates: start: 20210221, end: 20210227
  4. VINCRISTINE [Suspect]
     Active Substance: VINCRISTINE
     Indication: ACUTE LYMPHOCYTIC LEUKAEMIA
     Dosage: VINCRISTINE + 0.9% SODIUM CHLORIDE 10 ML
     Route: 042
     Dates: start: 20210220, end: 20210220
  5. CYTOSAR [Suspect]
     Active Substance: CYTARABINE
     Dosage: CYTARABINE 0.08G + 5% GLUCOSE 100ML
     Route: 041
     Dates: start: 20210220, end: 20210227
  6. METHOTREXATE. [Suspect]
     Active Substance: METHOTREXATE
     Indication: ACUTE LYMPHOCYTIC LEUKAEMIA
     Dosage: METHOTREXATE 12.5 MG + DEXAMETHASONE SODIUM PHOSPHATE 2.5 MG + 0.9% SODIUM CHLORIDE 3ML
     Route: 037
     Dates: start: 20210220, end: 20210220
  7. ENDOXAN [Suspect]
     Active Substance: CYCLOPHOSPHAMIDE
     Indication: ACUTE LYMPHOCYTIC LEUKAEMIA
     Dosage: CYCLOPHOSPHAMIDE + 0.9% SODIUM CHLORIDE 250ML
     Route: 041
     Dates: start: 20210220, end: 20210220
  8. SODIUM CHLORIDE. [Suspect]
     Active Substance: SODIUM CHLORIDE
     Indication: MEDICATION DILUTION
     Dosage: METHOTREXATE + DEXAMETHASONE SODIUM PHOSPHATE 2.5 MG + 0.9% SODIUM CHLORIDE 3ML
     Route: 037
     Dates: start: 20210220, end: 20210220
  9. DEXAMETHASONE SODIUM PHOSPHATE. [Suspect]
     Active Substance: DEXAMETHASONE SODIUM PHOSPHATE
     Dosage: METHOTREXATE + DEXAMETHASONE SODIUM PHOSPHATE 2.5 MG + 0.9% SODIUM CHLORIDE 3ML
     Route: 037
     Dates: start: 20210220, end: 20210220
  10. SODIUM CHLORIDE. [Suspect]
     Active Substance: SODIUM CHLORIDE
     Indication: MEDICATION DILUTION
     Dosage: 0.9% SODIUM CHLORIDE + CYCLOPHOSPHAMIDE 1.6G
     Route: 041
     Dates: start: 20210220, end: 20210220
  11. GLUCOSE [Suspect]
     Active Substance: DEXTROSE
     Indication: MEDICATION DILUTION
     Dosage: 5% GLUCOSE + CYTOSAR 0.08 G
     Route: 041
     Dates: start: 20210220, end: 20210227
  12. CYTOSAR [Suspect]
     Active Substance: CYTARABINE
     Indication: ACUTE LYMPHOCYTIC LEUKAEMIA
     Dosage: CYTOSAR 0.035G + DEXAMETHASONE SODIUM PHOSPHATE 2.5 MG + 0.9% SODIUM CHLORIDE 3ML
     Route: 037
     Dates: start: 20210220, end: 20210220
  13. SODIUM CHLORIDE. [Suspect]
     Active Substance: SODIUM CHLORIDE
     Dosage: CYTOSAR 0.035G + DEXAMETHASONE SODIUM PHOSPHATE 2.5 MG + 0.9% SODIUM CHLORIDE 3ML
     Route: 037
     Dates: start: 20210220, end: 20210220

REACTIONS (1)
  - Myelosuppression [Recovering/Resolving]

NARRATIVE: CASE EVENT DATE: 20210301
